FAERS Safety Report 4512060-8 (Version None)
Quarter: 2004Q4

REPORT INFORMATION
  Report Type: 
  Country: None (occurrence: None)
  Receive Date: 20041129
  Receipt Date: 20031118
  Transmission Date: 20050328
  Serious: Yes (Death)
  Sender: FDA-Public Use
  Company Number: CA-ROCHE-351865

PATIENT
  Age: 57 Year
  Sex: Female
  Weight: 93 kg

DRUGS (2)
  1. PEG-INTERFERON ALFA 2A (RO 25-8310) [Suspect]
     Route: 058
     Dates: start: 20030311, end: 20030923
  2. RIBAVIRIN [Suspect]
     Route: 048
     Dates: start: 20030521, end: 20030924

REACTIONS (3)
  - B-CELL LYMPHOMA [None]
  - HYPOAESTHESIA [None]
  - MUSCLE SPASMS [None]
